FAERS Safety Report 9519864 (Version 1)
Quarter: 2013Q1

REPORT INFORMATION
  Report Type: Spontaneous
  Country: US (occurrence: None)
  Receive Date: 20130305
  Receipt Date: 20130305
  Transmission Date: 20140127
  Serious: Yes (Hospitalization, Other)
  Sender: FDA-Public Use
  Company Number: 163-21880-12012828

PATIENT
  Age: 54 Year
  Sex: Female

DRUGS (7)
  1. REVLIMID [Suspect]
     Indication: PLASMA CELL MYELOMA
     Dosage: 25 MG, QD 21/28, PO
     Route: 048
     Dates: start: 20110524
  2. DEXAMETHASONE (DEXAMETHASONE) (UNKNOWN) [Concomitant]
  3. ASA (ACETYLSALICYLIC ACID) (UNKNOWN) [Concomitant]
  4. CALCIUM WITH VITAMIN D (CALCIUM WITH VITAMIN D) (UNKNOWN) [Concomitant]
  5. PAMIDRONATE (PAMIDRONATE DISODIUM) (UNKNOWN) [Concomitant]
  6. DILANTIN (PHENYTOIN SODIUM) (UNKNOWN) [Concomitant]
  7. LANTUS (INSULIN GLARGINE) (UNKNOWN) [Concomitant]

REACTIONS (2)
  - Febrile neutropenia [None]
  - Colitis [None]
